FAERS Safety Report 11948169 (Version 2)
Quarter: 2016Q1

REPORT INFORMATION
  Report Type: Report from Study
  Country: GB (occurrence: GB)
  Receive Date: 20160125
  Receipt Date: 20160317
  Transmission Date: 20160526
  Serious: Yes (Hospitalization)
  Sender: FDA-Public Use
  Company Number: GB-BIOGEN-2016BI00173882

PATIENT
  Age: 56 Year
  Sex: Male
  Weight: 75.1 kg

DRUGS (15)
  1. TRAMADOL. [Concomitant]
     Active Substance: TRAMADOL
     Route: 048
  2. PARACETAMOL [Concomitant]
     Active Substance: ACETAMINOPHEN
     Indication: ARTHRALGIA
     Route: 048
     Dates: start: 2006
  3. DIAZEPAM. [Concomitant]
     Active Substance: DIAZEPAM
     Route: 048
  4. PANTOPRAZOLE [Concomitant]
     Active Substance: PANTOPRAZOLE SODIUM
     Indication: DYSPEPSIA
     Route: 048
     Dates: start: 20120314
  5. RFIXFC [Suspect]
     Active Substance: EFTRENONACOG ALFA
     Route: 042
     Dates: start: 20151210
  6. TRAMADOL. [Concomitant]
     Active Substance: TRAMADOL
     Indication: ARTHRALGIA
     Route: 048
     Dates: start: 2006
  7. BISOPROLOL [Concomitant]
     Active Substance: BISOPROLOL
     Indication: HYPERTENSION
     Route: 048
     Dates: start: 20111124
  8. BISOPROLOL [Concomitant]
     Active Substance: BISOPROLOL
     Route: 048
  9. DIAZEPAM. [Concomitant]
     Active Substance: DIAZEPAM
     Indication: MUSCLE RELAXANT THERAPY
     Route: 048
     Dates: start: 20151119, end: 20151120
  10. PARACETAMOL [Concomitant]
     Active Substance: ACETAMINOPHEN
     Indication: ANALGESIC THERAPY
     Route: 042
     Dates: start: 20151117, end: 20151117
  11. PARACETAMOL [Concomitant]
     Active Substance: ACETAMINOPHEN
     Route: 048
     Dates: end: 20151121
  12. ETORICOXIB [Concomitant]
     Active Substance: ETORICOXIB
     Indication: ARTHRALGIA
     Route: 048
     Dates: start: 20120723
  13. RFIXFC [Suspect]
     Active Substance: EFTRENONACOG ALFA
     Indication: HAEMOPHILIA
     Route: 042
     Dates: start: 20111118
  14. RFIXFC [Suspect]
     Active Substance: EFTRENONACOG ALFA
     Route: 042
     Dates: start: 20151031
  15. DIAZEPAM. [Concomitant]
     Active Substance: DIAZEPAM
     Indication: MUSCULOSKELETAL STIFFNESS
     Route: 048
     Dates: start: 20130611

REACTIONS (1)
  - Haemophilic arthropathy [Recovered/Resolved]

NARRATIVE: CASE EVENT DATE: 20151117
